FAERS Safety Report 16923864 (Version 3)
Quarter: 2019Q4

REPORT INFORMATION
  Report Type: Spontaneous
  Country: JP (occurrence: JP)
  Receive Date: 20191016
  Receipt Date: 20191112
  Transmission Date: 20200122
  Serious: Yes (Other)
  Sender: FDA-Public Use
  Company Number: PHJP2019JP012949

PATIENT
  Age: 13 Year
  Sex: Female
  Weight: 41 kg

DRUGS (5)
  1. MIRACLID [Concomitant]
     Active Substance: ULINASTATIN
     Indication: PANCREATIC INJURY
     Dosage: UNK
     Route: 065
  2. CILASTATIN SODIUM [Concomitant]
     Active Substance: CILASTATIN SODIUM
     Indication: PANCREATIC INJURY
     Dosage: UNK
     Route: 065
  3. CITICOLINE [Concomitant]
     Active Substance: CITICOLINE
     Indication: PANCREATIC INJURY
     Dosage: UNK
     Route: 065
  4. OCTREOTIDE. [Suspect]
     Active Substance: OCTREOTIDE
     Indication: PANCREATIC INJURY
     Dosage: UNK
     Route: 065
  5. FOY [Concomitant]
     Active Substance: GABEXATE MESYLATE
     Indication: PANCREATIC INJURY
     Dosage: UNK
     Route: 065

REACTIONS (3)
  - Product use in unapproved indication [Unknown]
  - Peripancreatic fluid collection [Recovering/Resolving]
  - Amylase increased [Recovered/Resolved]
